FAERS Safety Report 9201175 (Version 2)
Quarter: 2013Q2

REPORT INFORMATION
  Report Type: Report from Study
  Country: DE (occurrence: DE)
  Receive Date: 20130401
  Receipt Date: 20130424
  Transmission Date: 20140414
  Serious: Yes (Death, Hospitalization)
  Sender: FDA-Public Use
  Company Number: PHHY2013DE029548

PATIENT
  Sex: Male
  Weight: 99 kg

DRUGS (1)
  1. SANDOSTATIN LAR [Suspect]
     Indication: ACROMEGALY
     Dosage: 20 MG, UNK
     Route: 030
     Dates: start: 20100128

REACTIONS (3)
  - Death [Fatal]
  - Pain in extremity [Unknown]
  - Hypokalaemia [Recovering/Resolving]
